FAERS Safety Report 16121233 (Version 3)
Quarter: 2021Q2

REPORT INFORMATION
  Report Type: Spontaneous
  Country: JP (occurrence: JP)
  Receive Date: 20190327
  Receipt Date: 20210427
  Transmission Date: 20210716
  Serious: Yes (Death, Hospitalization, Other)
  Sender: FDA-Public Use
  Company Number: JP-009507513-1902JPN001476J

PATIENT
  Age: 66 Year
  Sex: Male
  Weight: 55 kg

DRUGS (28)
  1. PACLITAXEL. [Suspect]
     Active Substance: PACLITAXEL
     Indication: LUNG SQUAMOUS CELL CARCINOMA STAGE III
     Dosage: 318 MILLIGRAM, Q3W
     Route: 041
     Dates: start: 20190116, end: 20190116
  2. POLARAMINE [Concomitant]
     Active Substance: DEXCHLORPHENIRAMINE MALEATE
     Dosage: 1 DOSAGE FORM
     Route: 051
     Dates: start: 20190206, end: 20190206
  3. ALOXI [Concomitant]
     Active Substance: PALONOSETRON HYDROCHLORIDE
     Dosage: 1 DOSAGE FORM
     Route: 041
     Dates: start: 20190116, end: 20190116
  4. ALOXI [Concomitant]
     Active Substance: PALONOSETRON HYDROCHLORIDE
     Dosage: 1 DOSAGE FORM
     Route: 041
     Dates: start: 20190206, end: 20190206
  5. PACLITAXEL. [Suspect]
     Active Substance: PACLITAXEL
     Dosage: 315 MILLIGRAM, Q3W
     Route: 041
     Dates: start: 20190305, end: 20190305
  6. POLARAMINE [Concomitant]
     Active Substance: DEXCHLORPHENIRAMINE MALEATE
     Dosage: 1 DOSAGE FORM
     Route: 051
     Dates: start: 20190305, end: 20190305
  7. DEXART [Concomitant]
     Active Substance: DEXAMETHASONE SODIUM PHOSPHATE
     Dosage: 3 MILLILITER
     Route: 051
     Dates: start: 20190116, end: 20190116
  8. RANITIDINE. [Concomitant]
     Active Substance: RANITIDINE
     Dosage: 1 DOSAGE FORM
     Route: 051
     Dates: start: 20190206, end: 20190206
  9. KEYTRUDA [Suspect]
     Active Substance: PEMBROLIZUMAB
     Indication: LUNG SQUAMOUS CELL CARCINOMA STAGE III
     Dosage: 200 MILLIGRAM, Q3W
     Route: 041
     Dates: start: 20190116, end: 20190604
  10. PACLITAXEL. [Suspect]
     Active Substance: PACLITAXEL
     Dosage: UNK
     Route: 041
     Dates: start: 202004, end: 202004
  11. ALOXI [Concomitant]
     Active Substance: PALONOSETRON HYDROCHLORIDE
     Dosage: 1 DOSAGE FORM
     Route: 041
     Dates: start: 20190305, end: 20190305
  12. CARBOPLATIN. [Suspect]
     Active Substance: CARBOPLATIN
     Dosage: 682 MILLIGRAM, Q3W
     Route: 041
     Dates: start: 20190206, end: 20190206
  13. RANITIDINE. [Concomitant]
     Active Substance: RANITIDINE
     Dosage: 1 DOSAGE FORM
     Route: 051
     Dates: start: 20190305, end: 20190305
  14. KEYTRUDA [Suspect]
     Active Substance: PEMBROLIZUMAB
     Dosage: 200 MILLIGRAM, Q3W
     Route: 041
     Dates: start: 20200417, end: 20200417
  15. CARBOPLATIN. [Suspect]
     Active Substance: CARBOPLATIN
     Dosage: 635 MILLIGRAM, Q3W
     Route: 041
     Dates: start: 20190305, end: 20190305
  16. CARBOPLATIN. [Suspect]
     Active Substance: CARBOPLATIN
     Dosage: UNK
     Route: 041
     Dates: start: 202004, end: 202004
  17. POLARAMINE [Concomitant]
     Active Substance: DEXCHLORPHENIRAMINE MALEATE
     Dosage: 1 DOSAGE FORM
     Route: 051
     Dates: start: 20190116, end: 20190116
  18. EMEND [Concomitant]
     Active Substance: APREPITANT
     Dosage: 125 MILLIGRAM
     Route: 048
     Dates: start: 20190206, end: 20190206
  19. EMEND [Concomitant]
     Active Substance: APREPITANT
     Dosage: 125 MILLIGRAM
     Route: 048
     Dates: start: 20190305, end: 20190305
  20. DEXART [Concomitant]
     Active Substance: DEXAMETHASONE SODIUM PHOSPHATE
     Dosage: 3 MILLILITER
     Route: 051
     Dates: start: 20190206, end: 20190206
  21. DEXART [Concomitant]
     Active Substance: DEXAMETHASONE SODIUM PHOSPHATE
     Dosage: 3 MILLILITER
     Route: 051
     Dates: start: 20190305, end: 20190305
  22. RANITIDINE. [Concomitant]
     Active Substance: RANITIDINE
     Dosage: 1 DOSAGE FORM
     Route: 051
     Dates: start: 20190116, end: 20190116
  23. PACLITAXEL. [Suspect]
     Active Substance: PACLITAXEL
     Dosage: 318 MILLIGRAM, Q3W
     Route: 041
     Dates: start: 20190206, end: 20190206
  24. EMEND [Concomitant]
     Active Substance: APREPITANT
     Dosage: 125 MILLIGRAM
     Route: 048
     Dates: start: 20190116, end: 20190116
  25. CALONAL [Concomitant]
     Active Substance: ACETAMINOPHEN
     Dosage: 500 MILLIGRAM
     Route: 048
     Dates: start: 20190116, end: 20190116
  26. CALONAL [Concomitant]
     Active Substance: ACETAMINOPHEN
     Dosage: 500 MILLIGRAM
     Route: 048
     Dates: start: 20190206, end: 20190206
  27. CALONAL [Concomitant]
     Active Substance: ACETAMINOPHEN
     Dosage: 500 MILLIGRAM
     Route: 048
     Dates: start: 20190305, end: 20190305
  28. CARBOPLATIN. [Suspect]
     Active Substance: CARBOPLATIN
     Indication: LUNG SQUAMOUS CELL CARCINOMA STAGE III
     Dosage: 720 MILLIGRAM, Q3W
     Route: 041
     Dates: start: 20190116, end: 20190116

REACTIONS (13)
  - Neutropenia [Unknown]
  - Pyrexia [Unknown]
  - Hypoxia [Unknown]
  - Diarrhoea [Recovered/Resolved]
  - Death [Fatal]
  - Sepsis [Unknown]
  - Proctitis [Unknown]
  - Renal impairment [Unknown]
  - Dehydration [Unknown]
  - Colitis [Recovered/Resolved]
  - Thrombocytopenia [Unknown]
  - Febrile neutropenia [Unknown]
  - Faeces soft [Unknown]

NARRATIVE: CASE EVENT DATE: 20190209
